FAERS Safety Report 9735868 (Version 1)
Quarter: 2013Q4

REPORT INFORMATION
  Report Type: Spontaneous
  Country: US (occurrence: US)
  Receive Date: 20131206
  Receipt Date: 20131206
  Transmission Date: 20140711
  Serious: No
  Sender: FDA-Public Use
  Company Number: US-GILEAD-2009-0024270

PATIENT
  Sex: Female
  Weight: 62.6 kg

DRUGS (12)
  1. LETAIRIS [Suspect]
     Indication: PULMONARY ARTERIAL HYPERTENSION
     Route: 048
     Dates: start: 20090326
  2. REVATIO [Concomitant]
     Indication: PULMONARY ARTERIAL HYPERTENSION
  3. ALBUTEROL INHALER [Concomitant]
  4. LASIX [Concomitant]
  5. NEOMYCIN [Concomitant]
  6. URSODIOL [Concomitant]
  7. SPIRONOLACTONE [Concomitant]
  8. GLIPIZIDE ER [Concomitant]
  9. IMODIUM AD [Concomitant]
  10. BL VITAMIN A [Concomitant]
  11. VITAMIN D [Concomitant]
  12. CALCIUM [Concomitant]

REACTIONS (1)
  - Local swelling [Unknown]
